FAERS Safety Report 15121649 (Version 7)
Quarter: 2020Q2

REPORT INFORMATION
  Report Type: Report from Study
  Country: PL (occurrence: PL)
  Receive Date: 20180709
  Receipt Date: 20200601
  Transmission Date: 20200713
  Serious: Yes (Hospitalization)
  Sender: FDA-Public Use
  Company Number: PL-JNJFOC-20180703648

PATIENT
  Age: 30 Year
  Sex: Female
  Weight: 45.9 kg

DRUGS (19)
  1. CARFILZOMIB [Suspect]
     Active Substance: CARFILZOMIB
     Dosage: 84 MILLIGRAM, PER CHEMO REGIM
     Route: 042
  2. MILURIT [Concomitant]
     Active Substance: ALLOPURINOL
     Dosage: 1 UNK
     Dates: start: 20180120
  3. CARFILZOMIB [Suspect]
     Active Substance: CARFILZOMIB
     Indication: PLASMA CELL MYELOMA
     Dosage: UNK UNK, PER CHEMO REGIM
     Route: 042
     Dates: start: 20180116
  4. CONCOR COR [Concomitant]
     Active Substance: BISOPROLOL FUMARATE
     Dosage: 1 UNK
     Dates: start: 20180322
  5. PARACETAMOL [Concomitant]
     Active Substance: ACETAMINOPHEN
     Dosage: 1000 MILLIGRAM AND 1 GRAM
     Route: 065
     Dates: start: 20180116
  6. DARATUMUMAB [Suspect]
     Active Substance: DARATUMUMAB
     Indication: PLASMA CELL MYELOMA
     Dosage: 768 MILLIGRAM, PER CHEMO REGIM
     Route: 042
     Dates: start: 20180116
  7. DARATUMUMAB [Suspect]
     Active Substance: DARATUMUMAB
     Dosage: UNK UNK, PER CHEMO REGIM
     Route: 042
     Dates: start: 20180712
  8. DEXAMETHASONE. [Suspect]
     Active Substance: DEXAMETHASONE
     Indication: PLASMA CELL MYELOMA
     Dosage: 20-40 MILLIGRAM
     Route: 048
     Dates: start: 20180329
  9. CALPEROS                           /00944201/ [Concomitant]
     Active Substance: CALCIUM CARBONATE\CHOLECALCIFEROL
     Dosage: 1000 MILLIGRAM, 2 UNK
     Dates: start: 20180329, end: 20180719
  10. NO-SPA [Concomitant]
     Active Substance: DROTAVERINE HYDROCHLORIDE
     Dosage: 1 UNK
     Dates: start: 20180328
  11. MONTELUKAST [Concomitant]
     Active Substance: MONTELUKAST SODIUM
     Dosage: 10 MILLIGRAM
     Route: 048
     Dates: start: 20180116
  12. CLEMASTINE [Concomitant]
     Active Substance: CLEMASTINE
     Dosage: 2 MILLIGRAM
     Route: 048
     Dates: start: 20180116
  13. MONTELUKAST SODIUM. [Concomitant]
     Active Substance: MONTELUKAST SODIUM
     Dosage: 10 MILLIGRAM
     Route: 048
     Dates: start: 20180516
  14. BISEPTOL [Concomitant]
     Active Substance: SULFAMETHOXAZOLE\TRIMETHOPRIM
     Dosage: 1 UNK
     Route: 048
     Dates: start: 20180116
  15. CONTROLOC [Concomitant]
     Active Substance: PANTOPRAZOLE SODIUM
     Dosage: 1 UNK
     Route: 048
     Dates: start: 20180116
  16. METHYLPREDNISOLONE. [Concomitant]
     Active Substance: METHYLPREDNISOLONE
     Dosage: 20 MILLIGRAM
     Route: 048
     Dates: start: 20180120
  17. HASCOVIR [Concomitant]
     Dosage: 3 UNK
     Route: 048
     Dates: start: 20180116
  18. CARFILZOMIB [Suspect]
     Active Substance: CARFILZOMIB
     Dosage: 84 MILLIGRAM, PER CHEMO REGIM
     Route: 042
     Dates: start: 20180712
  19. DEVIKAP [Concomitant]
     Dosage: 4 GTT DROPS
     Dates: start: 20180206

REACTIONS (1)
  - Sinusitis [Recovered/Resolved]

NARRATIVE: CASE EVENT DATE: 20180627
